FAERS Safety Report 8222659-3 (Version None)
Quarter: 2012Q1

REPORT INFORMATION
  Report Type: 
  Country: None (occurrence: None)
  Receive Date: 20120315
  Receipt Date: 20120302
  Transmission Date: 20120608
  Serious: Yes (Disabling)
  Sender: FDA-Public Use
  Company Number: 2012SP005230

PATIENT
  Age: 18 Year
  Sex: Male

DRUGS (6)
  1. RIBAVIRIN [Suspect]
     Indication: HEPATITIS C
     Dosage: 200 MG; BID; PO
     Route: 048
     Dates: start: 20100106, end: 20101208
  2. AMPHOTERICIN B [Concomitant]
  3. BOCEPREVIR (SCH-503034) [Suspect]
     Indication: HEPATITIS C
     Dosage: 800 MG; TID; PO
     Route: 048
     Dates: start: 20100203, end: 20101208
  4. PEG-INTRON [Suspect]
     Indication: HEPATITIS C
     Dosage: 150 MCG; QW; SC
     Route: 058
     Dates: start: 20100108, end: 20101203
  5. XYLOCAINE [Concomitant]
  6. ITRACONAZOLE [Concomitant]

REACTIONS (3)
  - RETINITIS [None]
  - VISUAL IMPAIRMENT [None]
  - RETINAL DETACHMENT [None]
